FAERS Safety Report 4639213-2 (Version None)
Quarter: 2005Q2

REPORT INFORMATION
  Report Type: 
  Country: None (occurrence: None)
  Receive Date: 20050418
  Receipt Date: 20050330
  Transmission Date: 20051028
  Serious: Yes (Hospitalization)
  Sender: FDA-Public Use
  Company Number: S05-FRA-01415-02

PATIENT
  Age: 6 Month
  Sex: Male

DRUGS (2)
  1. CITALOPRAM HYDROBROMIDE [Suspect]
     Dosage: 20 MG QD BF
  2. METOPROLOL TARTRATE [Concomitant]

REACTIONS (8)
  - ABDOMINAL PAIN [None]
  - ANOREXIA [None]
  - CRYING [None]
  - DRUG EXPOSURE VIA BREAST MILK [None]
  - GASTROINTESTINAL DISORDER [None]
  - GASTROOESOPHAGEAL REFLUX DISEASE [None]
  - INSOMNIA [None]
  - WEIGHT DECREASED [None]
